FAERS Safety Report 21077878 (Version 1)
Quarter: 2022Q3

REPORT INFORMATION
  Report Type: Spontaneous
  Country: CN (occurrence: CN)
  Receive Date: 20220713
  Receipt Date: 20220713
  Transmission Date: 20221026
  Serious: Yes (Other)
  Sender: FDA-Public Use
  Company Number: None

PATIENT
  Age: 67 Year
  Sex: Female
  Weight: 59 kg

DRUGS (5)
  1. CYCLOPHOSPHAMIDE [Suspect]
     Active Substance: CYCLOPHOSPHAMIDE
     Indication: Breast cancer female
     Dosage: 820 MG ONCE DAILY, INJECTION, ENDOXAN (820 MG) DILUTED WITH DILUENT SOIDUM CHLORIDE (45 ML), FIRST C
     Route: 042
     Dates: start: 20220420, end: 20220420
  2. SODIUM CHLORIDE [Suspect]
     Active Substance: SODIUM CHLORIDE
     Indication: Medication dilution
     Dosage: 45 ML, QD, ENDOXAN (820 MG) DILUTED WITH DILUENT SOIDUM CHLORIDE (45 ML), FIRST CHEMOTHERAPY
     Route: 042
     Dates: start: 20220420, end: 20220420
  3. SODIUM CHLORIDE [Suspect]
     Active Substance: SODIUM CHLORIDE
     Dosage: 250 ML, QD ONCE DAILY, DOCETAXEL INJECTION (TAXOTERE) (110 MG) DILUTED WITH DILUENT SODIUM CHLORIDE
     Route: 041
     Dates: start: 20220420, end: 20220420
  4. TAXOTERE [Suspect]
     Active Substance: DOCETAXEL
     Indication: Breast cancer female
     Dosage: 110 MG ONCE DAILY, DOCETAXEL INJECTION (TAXOTERE) (110 MG) DILUTED WITH DILUENT SODIUM CHLORIDE (NS)
     Route: 041
     Dates: start: 20220420, end: 20220420
  5. MECAPEGFILGRASTIM [Concomitant]
     Active Substance: MECAPEGFILGRASTIM
     Indication: Product used for unknown indication
     Dosage: 6 MG, INJECTED SUBCUTAENOUSLY, (AIDUO)
     Route: 058
     Dates: start: 202204

REACTIONS (3)
  - White blood cell count decreased [Recovering/Resolving]
  - Agranulocytosis [Recovering/Resolving]
  - Neutrophil count decreased [Recovering/Resolving]

NARRATIVE: CASE EVENT DATE: 20220429
